FAERS Safety Report 6973431-3 (Version None)
Quarter: 2010Q3

REPORT INFORMATION
  Report Type: 
  Country: None (occurrence: None)
  Receive Date: 20100909
  Receipt Date: 20100902
  Transmission Date: 20110219
  Serious: Yes (Hospitalization)
  Sender: FDA-Public Use
  Company Number: US-EISAI INC.-E2090-00658-SPO-US

PATIENT
  Sex: Male

DRUGS (5)
  1. ZONEGRAN [Suspect]
     Route: 048
  2. ZONEGRAN [Suspect]
     Route: 048
     Dates: start: 20080101, end: 20100101
  3. ZONISAMIDE [Suspect]
     Dosage: UNKNOWN
     Route: 048
     Dates: start: 20080101, end: 20080101
  4. ZONISAMIDE [Suspect]
     Dosage: UNKNOWN
     Route: 048
     Dates: start: 20100101
  5. DEPAKOTE [Concomitant]

REACTIONS (4)
  - AMMONIA INCREASED [None]
  - CONVULSION [None]
  - HALLUCINATION [None]
  - STATUS EPILEPTICUS [None]
